FAERS Safety Report 8095551-5 (Version None)
Quarter: 2012Q1

REPORT INFORMATION
  Report Type: 
  Country: None (occurrence: None)
  Receive Date: 20120131
  Receipt Date: 20120121
  Transmission Date: 20120608
  Serious: Yes (Other)
  Sender: FDA-Public Use
  Company Number: MX-SANOFI-AVENTIS-2012SA004667

PATIENT
  Age: 75 Year
  Sex: Female
  Weight: 42 kg

DRUGS (6)
  1. INDOMETHACIN [Concomitant]
     Indication: RHEUMATOID ARTHRITIS
     Dosage: .25 MG OF INDOMETHACIN + .75 MG OF BETAMETHASONE + 215 MG OF METHOCARBAMOL DOSE:1 UNIT(S)
     Route: 048
  2. PLAVIX [Suspect]
     Route: 048
     Dates: start: 20060101, end: 20111001
  3. OMEPRAZOLE [Concomitant]
     Route: 048
  4. PLAVIX [Suspect]
     Indication: THROMBOSIS PROPHYLAXIS
     Route: 048
     Dates: start: 20060101, end: 20111001
  5. OMEPRAZOLE [Concomitant]
     Indication: GASTRITIS
     Route: 048
  6. VONTROL [Concomitant]
     Indication: DIZZINESS
     Route: 048

REACTIONS (3)
  - DECREASED APPETITE [None]
  - WEIGHT DECREASED [None]
  - HAEMATOMA [None]
